FAERS Safety Report 23515450 (Version 2)
Quarter: 2024Q1

REPORT INFORMATION
  Report Type: Spontaneous
  Country: JP (occurrence: JP)
  Receive Date: 20240213
  Receipt Date: 20240304
  Transmission Date: 20240409
  Serious: Yes (Hospitalization)
  Sender: FDA-Public Use
  Company Number: JP-JNJFOC-20240180768

PATIENT
  Age: 6 Decade
  Sex: Male

DRUGS (8)
  1. UPTRAVI [Suspect]
     Active Substance: SELEXIPAG
     Indication: Pulmonary arterial hypertension
     Dosage: 0.4 MG/24 HOURS
     Route: 048
     Dates: start: 20231122, end: 20231124
  2. UPTRAVI [Suspect]
     Active Substance: SELEXIPAG
     Dosage: 0.8 MG/24 HOURS
     Route: 048
     Dates: start: 20231125, end: 20231206
  3. UPTRAVI [Suspect]
     Active Substance: SELEXIPAG
     Dosage: 1.2 MG/24 HOURS
     Route: 048
     Dates: start: 20231207, end: 20231220
  4. UPTRAVI [Suspect]
     Active Substance: SELEXIPAG
     Dosage: 1.6 MG/24 HOURS
     Route: 048
     Dates: start: 20231221, end: 20240106
  5. UPTRAVI [Suspect]
     Active Substance: SELEXIPAG
     Dosage: 2.0 MG/24 HOURS
     Route: 048
     Dates: start: 20240107, end: 20240116
  6. UPTRAVI [Suspect]
     Active Substance: SELEXIPAG
     Dosage: 1.6 MG/24 HOURS
     Route: 048
     Dates: start: 20240117, end: 2024
  7. UPTRAVI [Suspect]
     Active Substance: SELEXIPAG
     Dosage: 1.2 MG/24 HOURS
     Route: 048
     Dates: start: 2024
  8. OPSUMIT [Concomitant]
     Active Substance: MACITENTAN
     Indication: Pulmonary arterial hypertension
     Dates: start: 20230721

REACTIONS (2)
  - Pyrexia [Recovered/Resolved]
  - Headache [Recovered/Resolved]

NARRATIVE: CASE EVENT DATE: 20240108
